FAERS Safety Report 4727946-9 (Version None)
Quarter: 2005Q3

REPORT INFORMATION
  Report Type: 
  Country: None (occurrence: None)
  Receive Date: 20050725
  Receipt Date: 20050323
  Transmission Date: 20060218
  Serious: No
  Sender: FDA-Public Use
  Company Number: USA050393969

PATIENT
  Age: 26 Year
  Sex: Female
  Weight: 66 kg

DRUGS (2)
  1. STRATTERA [Suspect]
     Indication: ATTENTION DEFICIT/HYPERACTIVITY DISORDER
     Dosage: 40 MG DAY
     Dates: start: 20050323
  2. ALBUTEROL [Concomitant]

REACTIONS (5)
  - ANXIETY [None]
  - BLEPHAROSPASM [None]
  - FATIGUE [None]
  - PARAESTHESIA [None]
  - PILOERECTION [None]
